FAERS Safety Report 8992469 (Version 1)
Quarter: 2012Q4

REPORT INFORMATION
  Report Type: 
  Country: US (occurrence: US)
  Receive Date: 20121231
  Receipt Date: 20121231
  Transmission Date: 20130627
  Serious: Yes (Hospitalization, Other)
  Sender: FDA-Public Use
  Company Number: US-ELI_LILLY_AND_COMPANY-US201202004754

PATIENT
  Sex: Female

DRUGS (11)
  1. FORTEO [Suspect]
     Indication: OSTEOPOROSIS
     Dosage: 20 ug, qd
     Dates: start: 201112
  2. FORTEO [Suspect]
     Dosage: 20 ug, qd
     Dates: start: 201212
  3. EVISTA [Suspect]
     Dosage: 60 mg, qd
     Dates: start: 200812
  4. PROZAC [Suspect]
     Indication: DEPRESSION
     Dosage: 20 mg, UNK
     Dates: start: 1997
  5. CALCIUM [Concomitant]
     Dosage: UNK
  6. VITAMIN D [Concomitant]
     Dosage: UNK
  7. ASPIRIN [Concomitant]
     Dosage: UNK
  8. FISH OIL [Concomitant]
     Dosage: UNK
  9. GLUCOSAMINE [Concomitant]
     Dosage: UNK
  10. PRILOSEC [Concomitant]
     Dosage: UNK
  11. ALIGN [Concomitant]
     Dosage: UNK

REACTIONS (9)
  - Neoplasm malignant [Unknown]
  - Dizziness [Unknown]
  - Arthralgia [Unknown]
  - Pain in extremity [Unknown]
  - Depression [Unknown]
  - Bone density abnormal [Unknown]
  - Blood cholesterol increased [Unknown]
  - Cyst [Unknown]
  - Volvulus [Unknown]
